FAERS Safety Report 5491719-2 (Version None)
Quarter: 2007Q4

REPORT INFORMATION
  Report Type: 
  Country: None (occurrence: None)
  Receive Date: 20071022
  Receipt Date: 20071011
  Transmission Date: 20080405
  Serious: Yes (Life-Threatening)
  Sender: FDA-Public Use
  Company Number: JP-JNJFOC-20071003257

PATIENT
  Sex: Male
  Weight: 68 kg

DRUGS (12)
  1. REMICADE [Suspect]
     Route: 042
     Dates: start: 20060309
  2. REMICADE [Suspect]
     Route: 042
     Dates: start: 20060309
  3. REMICADE [Suspect]
     Route: 042
     Dates: start: 20060309
  4. REMICADE [Suspect]
     Route: 042
     Dates: start: 20060309
  5. REMICADE [Suspect]
     Route: 042
     Dates: start: 20060309
  6. REMICADE [Suspect]
     Route: 042
     Dates: start: 20060309
  7. REMICADE [Suspect]
     Indication: RHEUMATOID ARTHRITIS
     Route: 042
     Dates: start: 20060309
  8. ISCOTIN [Concomitant]
     Indication: ANTIBIOTIC PROPHYLAXIS
     Route: 048
  9. PREDNISOLONE [Concomitant]
     Route: 048
  10. PREDNISOLONE [Concomitant]
     Route: 048
  11. METHOTREXATE [Concomitant]
     Route: 048
  12. METHOTREXATE [Concomitant]
     Indication: RHEUMATOID ARTHRITIS
     Route: 048

REACTIONS (1)
  - LARGE INTESTINE CARCINOMA [None]
